FAERS Safety Report 6785951-5 (Version None)
Quarter: 2010Q2

REPORT INFORMATION
  Report Type: 
  Country: None (occurrence: None)
  Receive Date: 20100622
  Receipt Date: 20100622
  Transmission Date: 20101027
  Serious: Yes (Hospitalization)
  Sender: FDA-Public Use
  Company Number: None

PATIENT
  Age: 19 Month
  Sex: Male
  Weight: 8.8 kg

DRUGS (1)
  1. VITAMIN D [Suspect]

REACTIONS (5)
  - BLOOD CALCIUM INCREASED [None]
  - DRUG ADMINISTRATION ERROR [None]
  - LETHARGY [None]
  - VITAMIN D INCREASED [None]
  - VOMITING [None]
